FAERS Safety Report 17587163 (Version 3)
Quarter: 2020Q2

REPORT INFORMATION
  Report Type: Report from Study
  Country: CA (occurrence: CA)
  Receive Date: 20200326
  Receipt Date: 20200608
  Transmission Date: 20200713
  Serious: Yes (Hospitalization)
  Sender: FDA-Public Use
  Company Number: CA-TAKEDA-2020TUS015901

PATIENT
  Age: 27 Year
  Sex: Female

DRUGS (3)
  1. VEDOLIZUMAB [Suspect]
     Active Substance: VEDOLIZUMAB
     Indication: CROHN^S DISEASE
     Dosage: 300 MILLIGRAM
     Route: 042
     Dates: start: 20190327, end: 20200227
  2. STATEX                             /00036302/ [Concomitant]
     Active Substance: MORPHINE SULFATE
     Indication: ABDOMINAL PAIN
     Dosage: 5 MILLIGRAM, Q6HR
     Dates: start: 20190308
  3. PREDNISONE. [Concomitant]
     Active Substance: PREDNISONE
     Dosage: UNK
     Dates: start: 20070308

REACTIONS (4)
  - Gastrointestinal infection [Unknown]
  - Crohn^s disease [Unknown]
  - Hepatic infection [Unknown]
  - Drug ineffective [Unknown]
